FAERS Safety Report 10222911 (Version 1)
Quarter: 2014Q2

REPORT INFORMATION
  Report Type: Spontaneous
  Country: US (occurrence: None)
  Receive Date: 20140606
  Receipt Date: 20140606
  Transmission Date: 20141212
  Serious: Yes (Hospitalization)
  Sender: FDA-Public Use
  Company Number: None

PATIENT
  Age: 71 Year
  Sex: Male

DRUGS (12)
  1. SITAGLIPTAN [Suspect]
     Indication: TYPE 2 DIABETES MELLITUS
     Route: 048
  2. ASPIRIN [Concomitant]
  3. CARVEDILOL [Concomitant]
  4. DICLOFENAC [Concomitant]
  5. HYDROCHLOROTHIAZIDE [Concomitant]
  6. HYDROCODONE/ACETAMINOPHEN [Concomitant]
  7. INSULIN GLARGINE [Concomitant]
  8. LISINOPRIL [Concomitant]
  9. NIFEDIPINE [Concomitant]
  10. ONDANSETRON [Concomitant]
  11. PANTOPRAZOLE [Concomitant]
  12. SIMVASTATIN [Concomitant]

REACTIONS (2)
  - Pancreatitis [None]
  - Adenocarcinoma pancreas [None]
